FAERS Safety Report 5568465-X (Version None)
Quarter: 2007Q4

REPORT INFORMATION
  Report Type: 
  Country: None (occurrence: None)
  Receive Date: 20071217
  Receipt Date: 20071205
  Transmission Date: 20080405
  Serious: Yes (Congenital Anomaly)
  Sender: FDA-Public Use
  Company Number: 231034J07USA

PATIENT

DRUGS (4)
  1. REBIF [Suspect]
     Indication: MULTIPLE SCLEROSIS
     Dosage: I.U.
  2. LORTAB [Suspect]
     Dates: end: 20070101
  3. ZOLOFT [Suspect]
     Dates: end: 20070101
  4. BIRTH CONTROL PILL (ORAL CONTRACEPTIVE NOS) [Suspect]
     Dates: end: 20070101

REACTIONS (2)
  - DRUG EXPOSURE DURING PREGNANCY [None]
  - SOLITARY KIDNEY [None]
